FAERS Safety Report 24761034 (Version 2)
Quarter: 2025Q1

REPORT INFORMATION
  Report Type: Report from Study
  Country: JP (occurrence: JP)
  Receive Date: 20241220
  Receipt Date: 20250206
  Transmission Date: 20250409
  Serious: Yes (Other)
  Sender: AKEBIA THERAPEUTICS
  Company Number: JP-MTPC-MTPC2023-0004904

PATIENT
  Age: 44 Year
  Sex: Male
  Weight: 67.6 kg

DRUGS (15)
  1. VADADUSTAT [Suspect]
     Active Substance: VADADUSTAT
     Indication: Nephrogenic anaemia
     Dosage: 300 MILLIGRAM, QD
     Route: 048
     Dates: start: 20220929, end: 20221220
  2. VADADUSTAT [Suspect]
     Active Substance: VADADUSTAT
     Dosage: 450 MILLIGRAM, QD
     Route: 048
     Dates: start: 20221221, end: 20230206
  3. FERRIC CITRATE ANHYDROUS [Concomitant]
     Active Substance: FERRIC CITRATE ANHYDROUS
     Indication: Product used for unknown indication
     Dosage: 750 MILLIGRAM, QD
     Route: 048
     Dates: start: 20220826, end: 20221120
  4. FERRIC CITRATE ANHYDROUS [Concomitant]
     Active Substance: FERRIC CITRATE ANHYDROUS
     Dosage: 1500 MILLIGRAM, QD
     Route: 048
     Dates: start: 20221121
  5. DARBEPOETIN ALFA [Concomitant]
     Active Substance: DARBEPOETIN ALFA
     Indication: Nephrogenic anaemia
     Dosage: 50 MICROGRAM, 1/WEEK
     Route: 042
     Dates: start: 20230210
  6. DAPRODUSTAT [Concomitant]
     Active Substance: DAPRODUSTAT
     Indication: Nephrogenic anaemia
     Dosage: 2 MILLIGRAM, QD
     Route: 048
     Dates: end: 20220928
  7. NIFEDIPINE [Concomitant]
     Active Substance: NIFEDIPINE
     Indication: Product used for unknown indication
     Dosage: 40 MILLIGRAM, QD
     Route: 048
     Dates: end: 20221116
  8. DIOVAN [Concomitant]
     Active Substance: VALSARTAN
     Indication: Product used for unknown indication
     Dosage: 80 MILLIGRAM, QD
     Route: 048
  9. LINAGLIPTIN [Concomitant]
     Active Substance: LINAGLIPTIN
     Indication: Illness
     Dosage: 5 MILLIGRAM, QD
     Route: 048
  10. FUROSEMIDE [Concomitant]
     Active Substance: FUROSEMIDE
     Indication: Illness
     Dosage: 20 MILLIGRAM, QD
     Route: 048
     Dates: end: 20221116
  11. LEVETIRACETAM [Concomitant]
     Active Substance: LEVETIRACETAM
     Indication: Prophylaxis
     Dosage: 500 MILLIGRAM, QD
     Route: 048
     Dates: end: 20221114
  12. LEVETIRACETAM [Concomitant]
     Active Substance: LEVETIRACETAM
     Dosage: 1000 MILLIGRAM, QD
     Route: 048
     Dates: start: 20221115
  13. FEBUXOSTAT [Concomitant]
     Active Substance: FEBUXOSTAT
     Indication: Illness
     Dosage: 40 MILLIGRAM, QD
     Route: 048
  14. TRICHLORMETHIAZIDE [Concomitant]
     Active Substance: TRICHLORMETHIAZIDE
     Indication: Illness
     Dosage: 1 MILLIGRAM, QD
     Route: 048
     Dates: end: 20221116
  15. CALCIUM POLYSTYRENE SULFONATE [Concomitant]
     Active Substance: CALCIUM POLYSTYRENE SULFONATE
     Indication: Illness
     Dosage: 25 GRAM, QD
     Route: 048
     Dates: end: 20221028

REACTIONS (1)
  - Thyroid cancer [Recovered/Resolved with Sequelae]

NARRATIVE: CASE EVENT DATE: 20230206
